FAERS Safety Report 9199539 (Version 1)
Quarter: 2013Q1

REPORT INFORMATION
  Report Type: Spontaneous
  Country: US (occurrence: US)
  Receive Date: 20130329
  Receipt Date: 20130329
  Transmission Date: 20140127
  Serious: No
  Sender: FDA-Public Use
  Company Number: US-GLAXOSMITHKLINE-A0978756A

PATIENT
  Age: 47 Year
  Sex: Female
  Weight: 68.2 kg

DRUGS (28)
  1. BENLYSTA [Suspect]
     Indication: SYSTEMIC LUPUS ERYTHEMATOSUS
     Route: 042
     Dates: start: 20120216
  2. CYMBALTA [Concomitant]
  3. LASIX [Concomitant]
  4. LOPRESSOR [Concomitant]
  5. CARAFATE [Concomitant]
  6. NEXIUM [Concomitant]
  7. PERCOCET [Concomitant]
  8. BABY ASPIRIN [Concomitant]
  9. POTASSIUM [Concomitant]
  10. PROCARDIA XL [Concomitant]
  11. LODINE [Concomitant]
  12. OXYCODONE [Concomitant]
  13. PHENERGAN [Concomitant]
  14. CARDURA [Concomitant]
  15. TOPAMAX [Concomitant]
  16. MAGNESIUM [Concomitant]
  17. SINGULAIR [Concomitant]
  18. OXYCONTIN [Concomitant]
  19. PROAIR HFA [Concomitant]
  20. AMBIEN [Concomitant]
  21. XANAX [Concomitant]
  22. SEROQUEL [Concomitant]
  23. MAXALT [Concomitant]
  24. MIRALAX [Concomitant]
  25. RESTASIS [Concomitant]
  26. CHANTIX [Concomitant]
  27. PLAQUENIL [Concomitant]
  28. D-PENICILLAMINE [Concomitant]

REACTIONS (10)
  - Decreased appetite [Not Recovered/Not Resolved]
  - Asthenia [Not Recovered/Not Resolved]
  - Weight decreased [Not Recovered/Not Resolved]
  - Nausea [Not Recovered/Not Resolved]
  - Depression [Not Recovered/Not Resolved]
  - Crying [Not Recovered/Not Resolved]
  - Headache [Not Recovered/Not Resolved]
  - Vomiting [Unknown]
  - Constipation [Unknown]
  - Mental disorder [Unknown]
